FAERS Safety Report 8456120-8 (Version None)
Quarter: 2012Q2

REPORT INFORMATION
  Report Type: 
  Country: None (occurrence: None)
  Receive Date: 20120621
  Receipt Date: 20120615
  Transmission Date: 20120825
  Serious: Yes (Hospitalization)
  Sender: FDA-Public Use
  Company Number: PHHY2012BE050989

PATIENT
  Age: 14 Year
  Sex: Male

DRUGS (1)
  1. RITALIN [Suspect]
     Indication: ATTENTION DEFICIT/HYPERACTIVITY DISORDER
     Dosage: 20 MG, BID
     Dates: start: 20100101

REACTIONS (3)
  - QUADRIPLEGIA [None]
  - HYPOKALAEMIA [None]
  - PARALYSIS [None]
